FAERS Safety Report 26032217 (Version 1)
Quarter: 2025Q4

REPORT INFORMATION
  Report Type: Spontaneous
  Country: GB (occurrence: GB)
  Receive Date: 20251112
  Receipt Date: 20251112
  Transmission Date: 20260118
  Serious: Yes (Death)
  Sender: ROCHE
  Company Number: GB-ROCHE-10000429467

PATIENT
  Age: 70 Year
  Sex: Male

DRUGS (1)
  1. COLUMVI [Suspect]
     Active Substance: GLOFITAMAB-GXBM
     Indication: Lymphoma
     Dosage: CYCLE 6
     Route: 065

REACTIONS (2)
  - Sepsis [Fatal]
  - Diaphragmatic paralysis [Fatal]
